FAERS Safety Report 14599243 (Version 1)
Quarter: 2018Q1

REPORT INFORMATION
  Report Type: Spontaneous
  Country: US (occurrence: US)
  Receive Date: 20180303
  Receipt Date: 20180303
  Transmission Date: 20180509
  Serious: Yes (Life-Threatening, Hospitalization, Disabling, Other)
  Sender: FDA-Public Use
  Company Number: None

PATIENT
  Age: 24 Year
  Sex: Male
  Weight: 87.75 kg

DRUGS (3)
  1. LITHIUM. [Concomitant]
     Active Substance: LITHIUM
  2. ALBUTERAL [Concomitant]
     Active Substance: ALBUTEROL
  3. SINGULAIR [Suspect]
     Active Substance: MONTELUKAST SODIUM
     Indication: ASTHMA
     Dates: start: 20050301

REACTIONS (23)
  - Oppositional defiant disorder [None]
  - Alopecia [None]
  - Nightmare [None]
  - Anger [None]
  - Social avoidant behaviour [None]
  - Stress [None]
  - Feeling abnormal [None]
  - Attention deficit/hyperactivity disorder [None]
  - Irritability [None]
  - Educational problem [None]
  - Obsessive-compulsive disorder [None]
  - Mania [None]
  - Hallucination, auditory [None]
  - Weight increased [None]
  - Depression [None]
  - Crying [None]
  - Anxiety [None]
  - Intentional self-injury [None]
  - Muscle twitching [None]
  - Suicide attempt [None]
  - Impaired work ability [None]
  - Impaired quality of life [None]
  - Fear [None]

NARRATIVE: CASE EVENT DATE: 20180302
